FAERS Safety Report 9678982 (Version 2)
Quarter: 2013Q4

REPORT INFORMATION
  Report Type: Report from Study
  Country: US (occurrence: US)
  Receive Date: 20131108
  Receipt Date: 20131112
  Transmission Date: 20140711
  Serious: Yes (Other)
  Sender: FDA-Public Use
  Company Number: US-ROCHE-1300689

PATIENT
  Sex: Male

DRUGS (10)
  1. XOLAIR [Suspect]
     Indication: ASTHMA
     Dosage: SOLR
     Route: 058
  2. XOLAIR [Suspect]
     Indication: RHINITIS ALLERGIC
  3. ALBUTEROL [Concomitant]
     Dosage: NEB 1 VIAL PRN
     Route: 065
  4. DULERA [Concomitant]
     Dosage: 200MCG/5MCG 2 PUFFS BID
     Route: 065
  5. FLONASE NASAL SPRAY [Concomitant]
     Dosage: 2 SPRAYS QD ITNO NASAL
     Route: 065
  6. HYDROXYZINE [Concomitant]
     Dosage: QHS
     Route: 048
  7. MOMETASONE [Concomitant]
     Dosage: OINTMENT;  APPLY TO SKIN BID, EXTERNAL
     Route: 048
  8. SINGULAIR [Concomitant]
     Dosage: CHEWABLE TAB; 1 QD
     Route: 065
  9. TRIAMCINOLONE [Concomitant]
     Dosage: BID
     Route: 065
  10. VENTOLIN HFA [Concomitant]
     Dosage: 200 INHALATION; 2 PUFFS Q4-6HR
     Route: 065

REACTIONS (8)
  - Lip swelling [Unknown]
  - Oral pruritus [Unknown]
  - Urticaria [Unknown]
  - Eczema [Unknown]
  - Wheezing [Unknown]
  - Productive cough [Unknown]
  - Pruritus [Unknown]
  - Syncope [Unknown]
